FAERS Safety Report 20937484 (Version 1)
Quarter: 2022Q2

REPORT INFORMATION
  Report Type: Spontaneous
  Country: US (occurrence: None)
  Receive Date: 20220608
  Receipt Date: 20220608
  Transmission Date: 20220721
  Serious: No
  Sender: FDA-Public Use
  Company Number: None

PATIENT
  Age: 46 Year
  Sex: Female
  Weight: 97.52 kg

DRUGS (1)
  1. NIRMATRELVIR\RITONAVIR [Suspect]
     Active Substance: NIRMATRELVIR\RITONAVIR
     Indication: COVID-19 pneumonia
     Dates: start: 20220419, end: 20220422

REACTIONS (9)
  - Dizziness [None]
  - Paraesthesia [None]
  - Dystonia [None]
  - Tinnitus [None]
  - Blood pressure increased [None]
  - Headache [None]
  - Balance disorder [None]
  - Tremor [None]
  - Ear discomfort [None]

NARRATIVE: CASE EVENT DATE: 20220422
